FAERS Safety Report 9459909 (Version 1)
Quarter: 2013Q3

REPORT INFORMATION
  Report Type: Spontaneous
  Country: CN (occurrence: CN)
  Receive Date: 20130815
  Receipt Date: 20130815
  Transmission Date: 20140515
  Serious: Yes (Death, Life-Threatening)
  Sender: FDA-Public Use
  Company Number: CN-BAYER-2013-097098

PATIENT
  Age: 87 Year
  Sex: Male

DRUGS (13)
  1. ACETYLSALICYLIC ACID (} 100 MG) [Suspect]
     Indication: ANTIPLATELET THERAPY
     Dosage: 0.1 G, CRUSHED, ONCE DAILY, CRUSHED VIA NASOGASTRIC
     Route: 045
     Dates: start: 2012, end: 2012
  2. ACETYLSALICYLIC ACID (} 100 MG) [Suspect]
     Indication: ANTIPLATELET THERAPY
     Dosage: 0.1 G, CRUSHED, ONCE DAILY, CRUSHED VIA NASOGASTRIC
     Route: 045
     Dates: start: 20120615
  3. ISOSORBIDE MONONITRATE [Concomitant]
     Route: 048
  4. SPIRONOLACTONE [Concomitant]
     Route: 048
  5. FUROSEMIDE [Concomitant]
     Route: 048
  6. BENAZEPRIL [Concomitant]
     Route: 048
  7. MORPHINE [Concomitant]
     Indication: CARDIAC FAILURE
  8. CEDILANID [Concomitant]
     Indication: CARDIAC FAILURE
  9. CEFOPERAZONE W/SULBACTAM [Concomitant]
     Indication: INFECTION
  10. LEVOFLOXACIN [Concomitant]
     Indication: INFECTION
  11. PANTOPRAZOLE [Concomitant]
     Indication: GASTRIC PH DECREASED
  12. PANTOPRAZOLE [Concomitant]
     Indication: PROPHYLAXIS
  13. PANTOPRAZOLE [Concomitant]
     Indication: ENTERAL NUTRITION

REACTIONS (4)
  - Gastrointestinal haemorrhage [Fatal]
  - Multi-organ failure [Fatal]
  - Shock [None]
  - Wrong technique in drug usage process [None]
